FAERS Safety Report 6903487-5 (Version None)
Quarter: 2010Q3

REPORT INFORMATION
  Report Type: 
  Country: None (occurrence: None)
  Receive Date: 20100803
  Receipt Date: 20081009
  Transmission Date: 20110219
  Serious: No
  Sender: FDA-Public Use
  Company Number: US-PFIZER INC-2008085660

PATIENT
  Sex: Female
  Weight: 55.79 kg

DRUGS (6)
  1. LYRICA [Suspect]
     Indication: FIBROMYALGIA
     Dates: start: 20080101
  2. ALL OTHER THERAPEUTIC PRODUCTS [Suspect]
     Indication: RASH
  3. LEXAPRO [Concomitant]
  4. PLAVIX [Concomitant]
  5. FOLIC ACID [Concomitant]
  6. ALL OTHER THERAPEUTIC PRODUCTS [Concomitant]
     Indication: ARTHRITIS

REACTIONS (6)
  - APPLICATION SITE PAIN [None]
  - DRY EYE [None]
  - PAIN OF SKIN [None]
  - RASH [None]
  - SKIN DISCOLOURATION [None]
  - WEIGHT INCREASED [None]
